FAERS Safety Report 10704889 (Version 1)
Quarter: 2014Q4

REPORT INFORMATION
  Report Type: Report from Study
  Country: US (occurrence: None)
  Receive Date: 20141224
  Receipt Date: 20141224
  Transmission Date: 20150529
  Serious: No
  Sender: FDA-Public Use
  Company Number: CABO-14004746

PATIENT
  Age: 73 Year
  Sex: Male

DRUGS (2)
  1. COMETRIQ [Suspect]
     Active Substance: CABOZANTINIB S-MALATE
     Route: 048
     Dates: start: 20140824
  2. COMETRIQ [Suspect]
     Active Substance: CABOZANTINIB S-MALATE
     Indication: RENAL CANCER
     Route: 048
     Dates: start: 20140824

REACTIONS (12)
  - Oral herpes [None]
  - Musculoskeletal disorder [None]
  - Swelling [None]
  - Blood creatinine increased [None]
  - Muscle spasms [None]
  - Neuropathy peripheral [None]
  - Off label use [None]
  - Platelet count decreased [None]
  - Diarrhoea [None]
  - Hypertension [None]
  - Fasciitis [None]
  - Pharyngeal disorder [None]

NARRATIVE: CASE EVENT DATE: 2014
